FAERS Safety Report 9399771 (Version 2)
Quarter: 2013Q3

REPORT INFORMATION
  Report Type: Spontaneous
  Country: US (occurrence: US)
  Receive Date: 20130715
  Receipt Date: 20130717
  Transmission Date: 20140515
  Serious: Yes (Hospitalization, Other)
  Sender: FDA-Public Use
  Company Number: US-ROXANE LABORATORIES, INC.-2013-RO-01149RO

PATIENT
  Age: 65 Year
  Sex: Male

DRUGS (6)
  1. FUROSEMIDE [Suspect]
     Indication: CARDIAC FAILURE CONGESTIVE
     Dosage: 80 MG
  2. COREG [Concomitant]
  3. WARFARIN [Concomitant]
  4. PANTOPRAZOLE [Concomitant]
  5. AMIODARONE [Concomitant]
  6. SIMVASTATIN [Concomitant]

REACTIONS (4)
  - Cardiac failure congestive [Recovered/Resolved]
  - Fluid retention [Recovered/Resolved]
  - Drug ineffective [Unknown]
  - Product quality issue [Unknown]
